FAERS Safety Report 7066888-3 (Version None)
Quarter: 2010Q4

REPORT INFORMATION
  Report Type: 
  Country: None (occurrence: None)
  Receive Date: 20101028
  Receipt Date: 20101025
  Transmission Date: 20110411
  Serious: Yes (Hospitalization)
  Sender: FDA-Public Use
  Company Number: US-SP-2010-04863

PATIENT
  Sex: Male

DRUGS (7)
  1. THERACYS [Suspect]
     Indication: BLADDER CANCER
     Route: 043
     Dates: start: 20100908, end: 20100908
  2. PHENAZOPYRIDINE HCL TAB [Concomitant]
  3. LISINOPRIL [Concomitant]
  4. METFORMIN [Concomitant]
  5. FLOMAX [Concomitant]
  6. SIMVASTATIN [Concomitant]
  7. PROSCAR [Concomitant]

REACTIONS (4)
  - BLOOD URINE PRESENT [None]
  - BODY TEMPERATURE INCREASED [None]
  - HEADACHE [None]
  - HYPERPYREXIA [None]
